FAERS Safety Report 5716362-9 (Version None)
Quarter: 2008Q2

REPORT INFORMATION
  Report Type: 
  Country: None (occurrence: None)
  Receive Date: 20080424
  Receipt Date: 20080416
  Transmission Date: 20081010
  Serious: Yes (Other)
  Sender: FDA-Public Use
  Company Number: US-ASTRAZENECA-2007UW26111

PATIENT
  Age: 2 Year
  Sex: Female
  Weight: 15.6 kg

DRUGS (18)
  1. PULMICORT [Suspect]
     Indication: ASTHMA
     Dosage: 0.5 MG/2ML
     Route: 055
  2. PULMICORT [Suspect]
     Indication: MULTIPLE ALLERGIES
     Dosage: 0.5 MG/2ML
     Route: 055
  3. PULMICORT [Suspect]
     Route: 055
     Dates: start: 20070101, end: 20070101
  4. PULMICORT [Suspect]
     Route: 055
     Dates: start: 20070101, end: 20070101
  5. PULMICORT [Suspect]
     Dosage: 0.5 MG/2ML
     Route: 055
     Dates: start: 20070101
  6. PULMICORT [Suspect]
     Dosage: 0.5 MG/2ML
     Route: 055
     Dates: start: 20070101
  7. CLARITIN [Concomitant]
     Indication: RHINITIS ALLERGIC
  8. AUGMENTIN '125' [Concomitant]
  9. MOTRIN [Concomitant]
  10. CIPRODEX [Concomitant]
     Dosage: 0.3-0.1% - 5 DROPS INTO RIGHT EAR
     Route: 001
  11. AZITHROMYCIN [Concomitant]
     Dosage: 100 MG/5 ML
  12. AZITHROMYCIN [Concomitant]
     Dosage: 100 MG/5 ML
  13. BENADRYL [Concomitant]
  14. PALGIC [Concomitant]
     Dosage: 4 MG/5 ML
  15. SINGULAIR [Concomitant]
  16. SINGULAIR [Concomitant]
  17. ALBUTEROL [Concomitant]
     Dosage: 2.5 MG/3ML EVERY 4-6 HOURS AS NEEDED.
     Route: 055
  18. LORATADINE [Concomitant]
     Dosage: 5 MG/5 ML

REACTIONS (15)
  - ASTHMA [None]
  - COUGH [None]
  - CYANOSIS [None]
  - DRUG INEFFECTIVE [None]
  - DYSPNOEA [None]
  - ERYTHEMA INFECTIOSUM [None]
  - HEART RATE INCREASED [None]
  - HYPOXIA [None]
  - INCONTINENCE [None]
  - PYREXIA [None]
  - RESPIRATORY TRACT INFECTION [None]
  - RHINITIS ALLERGIC [None]
  - SINUSITIS [None]
  - SNORING [None]
  - WHEEZING [None]
